FAERS Safety Report 4413374-2 (Version None)
Quarter: 2004Q3

REPORT INFORMATION
  Report Type: 
  Country: None (occurrence: None)
  Receive Date: 20040728
  Receipt Date: 20040715
  Transmission Date: 20050211
  Serious: Yes (Life-Threatening)
  Sender: FDA-Public Use
  Company Number: 207866

PATIENT
  Age: 55 Year
  Sex: Female

DRUGS (2)
  1. CATHFLO ACTIVASE [Suspect]
     Indication: MEDICAL DEVICE COMPLICATION
     Dosage: 6MG,
     Dates: start: 20040713, end: 20040713
  2. ROCEPHIN [Concomitant]

REACTIONS (1)
  - ANAPHYLACTIC REACTION [None]
